FAERS Safety Report 21796281 (Version 1)
Quarter: 2022Q4

REPORT INFORMATION
  Report Type: Spontaneous
  Country: IT (occurrence: IT)
  Receive Date: 20221229
  Receipt Date: 20221229
  Transmission Date: 20230113
  Serious: Yes (Other)
  Sender: FDA-Public Use
  Company Number: IT-009507513-2212ITA009547

PATIENT
  Sex: Male

DRUGS (1)
  1. PEMBROLIZUMAB [Suspect]
     Active Substance: PEMBROLIZUMAB
     Indication: Colorectal cancer metastatic
     Dosage: 200 MG, Q3W

REACTIONS (10)
  - Large intestinal stenosis [Recovered/Resolved]
  - Gastrointestinal necrosis [Unknown]
  - Hepatic necrosis [Unknown]
  - Subileus [Unknown]
  - Neoplasm [Recovered/Resolved]
  - Necrobiosis [Unknown]
  - Nodule [Unknown]
  - Tissue infiltration [Unknown]
  - Abdominal pain [Unknown]
  - Colitis [Unknown]
